FAERS Safety Report 4924583-8 (Version None)
Quarter: 2006Q1

REPORT INFORMATION
  Report Type: 
  Country: None (occurrence: None)
  Receive Date: 20060222
  Receipt Date: 20060210
  Transmission Date: 20060701
  Serious: Yes (Life-Threatening, Hospitalization)
  Sender: FDA-Public Use
  Company Number: 2006018205

PATIENT
  Sex: 0

DRUGS (2)
  1. LINEZOLID SOLUTION, STERILE (LINEZOLID) [Suspect]
     Indication: PNEUMONIA STAPHYLOCOCCAL
     Dosage: 1200 MG , INTRAVENOUS
     Route: 042
  2. PIPERACILLIN/TAZOBACTAM (PIPERACILLIN, TAZOBACTAM) [Concomitant]

REACTIONS (1)
  - PANCREATITIS ACUTE [None]
